FAERS Safety Report 15805715 (Version 1)
Quarter: 2019Q1

REPORT INFORMATION
  Report Type: Spontaneous
  Country: HU (occurrence: HU)
  Receive Date: 20190110
  Receipt Date: 20190110
  Transmission Date: 20190417
  Serious: Yes (Other)
  Sender: FDA-Public Use
  Company Number: HU-SA-2019SA004391

PATIENT
  Age: 31 Year
  Sex: Female

DRUGS (1)
  1. LEMTRADA [Suspect]
     Active Substance: ALEMTUZUMAB
     Indication: MULTIPLE SCLEROSIS
     Dosage: 12 MG, QD
     Route: 041
     Dates: start: 20170717, end: 20170721

REACTIONS (3)
  - Atypical pneumonia [Unknown]
  - Listeriosis [Unknown]
  - Thyroiditis [Recovering/Resolving]
